FAERS Safety Report 26081706 (Version 1)
Quarter: 2025Q4

REPORT INFORMATION
  Report Type: Report from Study
  Country: US (occurrence: US)
  Receive Date: 20251124
  Receipt Date: 20251124
  Transmission Date: 20260117
  Serious: Yes (Other)
  Sender: ABBVIE
  Company Number: US-ABBVIE-6557056

PATIENT
  Sex: Male

DRUGS (1)
  1. SKYRIZI [Suspect]
     Active Substance: RISANKIZUMAB-RZAA
     Indication: Psoriatic arthropathy
     Dosage: USED FOR APPROX. A 6-8 MONTH PERIOD
     Route: 058
     Dates: start: 2020

REACTIONS (4)
  - Cataract [Unknown]
  - Photophobia [Unknown]
  - Eye swelling [Unknown]
  - Drug ineffective [Recovered/Resolved]
